FAERS Safety Report 5479166-0 (Version None)
Quarter: 2007Q4

REPORT INFORMATION
  Report Type: 
  Country: None (occurrence: None)
  Receive Date: 20071008
  Receipt Date: 20070928
  Transmission Date: 20080405
  Serious: Yes (Hospitalization, Other)
  Sender: FDA-Public Use
  Company Number: PHBS2007JP15554

PATIENT
  Age: 54 Year
  Sex: Female

DRUGS (15)
  1. TOFRANIL [Suspect]
     Indication: MAJOR DEPRESSION
     Dosage: 50 MG/D
     Route: 048
  2. TOFRANIL [Suspect]
     Dosage: 100 MG/D
     Route: 048
  3. TOFRANIL [Suspect]
     Dosage: 150 MG/D
     Route: 048
  4. TOFRANIL [Suspect]
     Dosage: 100 MG/D
     Route: 048
  5. TOFRANIL [Suspect]
     Dosage: 50 MG/D
     Route: 048
  6. MILNACIPRAN HYDROCHLORIDE [Concomitant]
     Dosage: 50 MG/D
     Route: 065
  7. MILNACIPRAN HYDROCHLORIDE [Concomitant]
     Dosage: 150 MG/D
     Route: 065
  8. MILNACIPRAN HYDROCHLORIDE [Concomitant]
     Dosage: 50 MG/D
     Route: 065
  9. AMOXAPINE [Concomitant]
     Dosage: 100 MG/D
     Route: 065
  10. AMOXAPINE [Concomitant]
     Dosage: 150 MG/D
     Route: 065
  11. CLOMIPRAMINE HYDROCHLORIDE [Concomitant]
     Dosage: 75 MG/D
     Route: 065
  12. CLOMIPRAMINE HYDROCHLORIDE [Concomitant]
     Dosage: 150 MG/D
     Route: 065
  13. SULPIRIDE [Concomitant]
     Dosage: 75 MG/D
     Route: 065
  14. MIANSERIN HYDROCHLORIDE [Concomitant]
     Dosage: 30 MG/D
     Route: 065
  15. MIANSERIN HYDROCHLORIDE [Concomitant]
     Dosage: 40 MG/D
     Route: 065

REACTIONS (6)
  - CEREBROVASCULAR DISORDER [None]
  - CONDITION AGGRAVATED [None]
  - DECREASED APPETITE [None]
  - HALLUCINATION, AUDITORY [None]
  - NYSTAGMUS [None]
  - VERTIGO POSITIONAL [None]
